FAERS Safety Report 8203019-8 (Version None)
Quarter: 2012Q1

REPORT INFORMATION
  Report Type: 
  Country: None (occurrence: None)
  Receive Date: 20120312
  Receipt Date: 20120306
  Transmission Date: 20120608
  Serious: Yes (Death, Hospitalization, Other)
  Sender: FDA-Public Use
  Company Number: JP-MEDIMMUNE-MEDI-0014623

PATIENT
  Sex: Male

DRUGS (10)
  1. SYNAGIS [Suspect]
     Route: 030
     Dates: start: 20101228, end: 20110126
  2. ACETYLSALICYLIC ACID SRT [Concomitant]
     Indication: ANTIPLATELET THERAPY
     Dates: start: 20101207
  3. SYNAGIS [Suspect]
     Route: 030
     Dates: start: 20110216, end: 20110216
  4. FUROSEMIDE [Concomitant]
     Dates: start: 20110114
  5. SPIRONOLACTONE [Concomitant]
     Route: 048
     Dates: start: 20110114
  6. NITROGLYCERIN [Concomitant]
     Indication: CARDIAC FAILURE
     Route: 062
     Dates: start: 20101203
  7. CAPTOPRIL [Concomitant]
     Indication: CARDIAC FAILURE
     Route: 048
     Dates: start: 20101204
  8. FERRIC PYROPHOSPHATE, SOLUBLE [Concomitant]
     Dates: start: 20110114
  9. SPIRONOLACTONE [Concomitant]
     Indication: CARDIAC FAILURE
     Route: 048
     Dates: start: 20101204, end: 20110113
  10. FUROSEMIDE [Concomitant]
     Indication: CARDIAC FAILURE
     Dates: start: 20101204, end: 20110113

REACTIONS (14)
  - CRYING [None]
  - SPUTUM RETENTION [None]
  - BRONCHIOLITIS [None]
  - RESPIRATORY SYNCYTIAL VIRUS INFECTION [None]
  - LOSS OF CONSCIOUSNESS [None]
  - RESPIRATORY SYNCYTIAL VIRUS TEST POSITIVE [None]
  - ARRHYTHMIA [None]
  - CARDIAC ARREST [None]
  - FEEDING DISORDER [None]
  - CARDIAC FAILURE [None]
  - COUGH [None]
  - PALLOR [None]
  - RHINORRHOEA [None]
  - DRUG INEFFECTIVE [None]
